FAERS Safety Report 14297208 (Version 4)
Quarter: 2018Q1

REPORT INFORMATION
  Report Type: Report from Study
  Country: JP (occurrence: JP)
  Receive Date: 20171218
  Receipt Date: 20180316
  Transmission Date: 20180509
  Serious: Yes (Hospitalization)
  Sender: FDA-Public Use
  Company Number: JP-EISAI MEDICAL RESEARCH-EC-2017-034205

PATIENT
  Age: 65 Year
  Sex: Male
  Weight: 59 kg

DRUGS (15)
  1. LENVATINIB [Suspect]
     Active Substance: LENVATINIB
     Route: 048
     Dates: start: 20170630, end: 20170726
  2. CANDESARTAN. [Concomitant]
     Active Substance: CANDESARTAN
  3. LENVATINIB [Suspect]
     Active Substance: LENVATINIB
     Route: 048
     Dates: start: 20170809, end: 20170920
  4. LENVATINIB [Suspect]
     Active Substance: LENVATINIB
     Route: 048
     Dates: start: 20171004, end: 20171213
  5. LYRICA [Suspect]
     Active Substance: PREGABALIN
     Indication: CANCER PAIN
     Route: 048
     Dates: start: 20171115, end: 20171215
  6. OXYCONTIN [Concomitant]
     Active Substance: OXYCODONE HYDROCHLORIDE
  7. THYRADIN S [Concomitant]
     Active Substance: LEVOTHYROXINE SODIUM
  8. SEPAMIT-R [Concomitant]
     Active Substance: NIFEDIPINE
  9. RIVOTRIL [Suspect]
     Active Substance: CLONAZEPAM
     Indication: CANCER PAIN
     Route: 048
     Dates: start: 20171115, end: 20171215
  10. AMLODIPINE [Concomitant]
     Active Substance: AMLODIPINE BESYLATE
  11. CARBAZOCHROME [Concomitant]
     Active Substance: CARBAZOCHROME
  12. OXINORM (OXYCODONE HYDROCHLORIDE) [Concomitant]
     Active Substance: OXYCODONE HYDROCHLORIDE
  13. LENVATINIB [Suspect]
     Active Substance: LENVATINIB
     Indication: NEOPLASM OF THYMUS
     Route: 048
     Dates: start: 20170517, end: 20170614
  14. DRENISON [Concomitant]
     Active Substance: FLURANDRENOLIDE
  15. TRANEXAMIC [Concomitant]

REACTIONS (1)
  - Pneumonitis [Recovering/Resolving]

NARRATIVE: CASE EVENT DATE: 20171213
